FAERS Safety Report 18179933 (Version 1)
Quarter: 2020Q3

REPORT INFORMATION
  Report Type: Spontaneous
  Country: US (occurrence: US)
  Receive Date: 20200821
  Receipt Date: 20200821
  Transmission Date: 20201103
  Serious: Yes (Other)
  Sender: FDA-Public Use
  Company Number: US-AUROBINDO-08-AUR-07153

PATIENT
  Age: 44 Year
  Sex: Male

DRUGS (2)
  1. CITALOPRAM [Suspect]
     Active Substance: CITALOPRAM HYDROBROMIDE
     Indication: MAJOR DEPRESSION
     Dosage: 20 MILLIGRAM, FOUR TIMES/DAY
     Route: 065
  2. CITALOPRAM [Suspect]
     Active Substance: CITALOPRAM HYDROBROMIDE
     Dosage: UNK
     Dates: end: 2004

REACTIONS (4)
  - Loss of libido [Not Recovered/Not Resolved]
  - Genital disorder [Unknown]
  - Orgasmic sensation decreased [Unknown]
  - Erectile dysfunction [Not Recovered/Not Resolved]
